FAERS Safety Report 8622210-X (Version None)
Quarter: 2012Q3

REPORT INFORMATION
  Report Type: 
  Country: None (occurrence: None)
  Receive Date: 20120827
  Receipt Date: 20120821
  Transmission Date: 20120928
  Serious: Yes (Other)
  Sender: FDA-Public Use
  Company Number: JP-AMGEN-JPNSP2012046549

PATIENT
  Age: 85 Year
  Sex: Male
  Weight: 49 kg

DRUGS (13)
  1. FLIVAS [Concomitant]
     Indication: DYSURIA
     Route: 048
     Dates: start: 20090106
  2. ESTRACYT [Concomitant]
     Indication: PROSTATE CANCER
     Route: 048
     Dates: start: 20110711
  3. FEBURIC [Concomitant]
     Indication: HYPERURICAEMIA
     Route: 048
     Dates: start: 20120514
  4. RANMARK [Suspect]
     Indication: PROSTATE CANCER
     Dosage: 120 MG, QD
     Route: 058
     Dates: start: 20120425, end: 20120620
  5. ASPARA-CA [Concomitant]
     Indication: PROSTATE CANCER
     Dosage: 200 MG, TID
     Route: 048
     Dates: start: 20120425, end: 20120620
  6. LASIX [Concomitant]
     Indication: ESSENTIAL HYPERTENSION
     Route: 048
     Dates: start: 20110808
  7. WYTENS [Concomitant]
     Indication: ESSENTIAL HYPERTENSION
     Route: 048
     Dates: start: 20120618
  8. BUP-4 [Concomitant]
     Indication: DYSURIA
     Route: 048
     Dates: start: 20070816
  9. CALBLOCK [Concomitant]
     Indication: ESSENTIAL HYPERTENSION
     Route: 048
     Dates: start: 20120514
  10. ASPIRIN [Concomitant]
     Indication: THROMBOSIS PROPHYLAXIS
     Route: 048
     Dates: start: 20110711
  11. ALFAROL [Concomitant]
     Indication: PROSTATE CANCER
     Route: 048
     Dates: start: 20120425, end: 20120620
  12. PURSENNID [Concomitant]
     Indication: CONSTIPATION
     Route: 048
     Dates: start: 20120326
  13. LANSOPRAZOLE [Concomitant]
     Indication: GASTROOESOPHAGEAL REFLUX DISEASE
     Route: 048
     Dates: start: 20110711

REACTIONS (1)
  - RENAL IMPAIRMENT [None]
